FAERS Safety Report 5039317-9 (Version None)
Quarter: 2006Q2

REPORT INFORMATION
  Report Type: 
  Country: None (occurrence: None)
  Receive Date: 20060629
  Receipt Date: 20060516
  Transmission Date: 20061013
  Serious: Yes (Other)
  Sender: FDA-Public Use
  Company Number: PHEH2006US06380

PATIENT
  Age: 63 Year
  Sex: Female
  Weight: 62.494 kg

DRUGS (2)
  1. XANAX [Concomitant]
     Indication: ANXIETY
     Dosage: 0.5 MG, BID
     Route: 048
     Dates: start: 20051201, end: 20060501
  2. LAMISIL [Suspect]
     Indication: NAIL TINEA
     Dosage: 250 MG, QD
     Route: 048
     Dates: start: 20060410, end: 20060512

REACTIONS (4)
  - AGEUSIA [None]
  - ANOSMIA [None]
  - CHROMATURIA [None]
  - WEIGHT DECREASED [None]
